FAERS Safety Report 7523478-3 (Version None)
Quarter: 2011Q2

REPORT INFORMATION
  Report Type: 
  Country: None (occurrence: None)
  Receive Date: 20110603
  Receipt Date: 20091119
  Transmission Date: 20111010
  Serious: Yes (Hospitalization, Other)
  Sender: FDA-Public Use
  Company Number: US-BAYER-200940012NA

PATIENT
  Age: 30 Month
  Sex: Female
  Weight: 11.2 kg

DRUGS (20)
  1. FENTANYL [Concomitant]
     Dosage: 50 MG
     Route: 042
  2. GENTAMYCIN SULFATE [Concomitant]
     Route: 042
  3. CAPTOPRIL [Concomitant]
     Dosage: 300 MG
  4. VERSED [Concomitant]
     Dosage: 1 MG
     Route: 042
  5. RED BLOOD CELLS [Concomitant]
     Route: 042
  6. ZOFRAN [Concomitant]
     Route: 042
  7. PROTAMINE SULFATE [Concomitant]
     Route: 042
  8. PLATELETS [Concomitant]
     Route: 042
  9. DOPAMINE HCL [Concomitant]
     Dosage: UNK
     Route: 042
     Dates: start: 20040523
  10. VANCOMYCIN [Concomitant]
     Route: 042
  11. TRASYLOL [Suspect]
     Indication: ARTERIAL THERAPEUTIC PROCEDURE
  12. AMICAR [Concomitant]
     Dosage: 3 ML
     Route: 042
  13. ACETYLSALICYLIC ACID SRT [Concomitant]
     Dosage: 81 MG, QD
  14. CALCIUM GLUCONATE [Concomitant]
     Dosage: UNK
     Route: 042
     Dates: start: 20040521
  15. TRASYLOL [Suspect]
     Indication: SYSTEMIC-PULMONARY ARTERY SHUNT
     Dosage: 33CC PUMP PRIME
     Route: 042
     Dates: start: 20040521, end: 20040521
  16. TRASYLOL [Suspect]
     Indication: PERICARDIAL REPAIR
  17. CEFUROXIME [Concomitant]
     Dosage: 30 MG
     Route: 042
  18. GLYCOPYRROLATE [Concomitant]
     Dosage: 0.1 ML
     Route: 042
  19. LASIX [Concomitant]
     Dosage: UNK
     Dates: start: 20040524
  20. PIPERACILLIN [Concomitant]
     Route: 042

REACTIONS (12)
  - INJURY [None]
  - RENAL FAILURE [None]
  - EMOTIONAL DISTRESS [None]
  - UNEVALUABLE EVENT [None]
  - ANHEDONIA [None]
  - ANXIETY [None]
  - RENAL IMPAIRMENT [None]
  - CEREBROVASCULAR ACCIDENT [None]
  - STRESS [None]
  - PAIN [None]
  - RENAL INJURY [None]
  - FEAR [None]
